FAERS Safety Report 7831368-1 (Version None)
Quarter: 2011Q4

REPORT INFORMATION
  Report Type: 
  Country: None (occurrence: None)
  Receive Date: 20111021
  Receipt Date: 20111017
  Transmission Date: 20120403
  Serious: Yes (Life-Threatening)
  Sender: FDA-Public Use
  Company Number: GB-ASTRAZENECA-2011SE62484

PATIENT
  Sex: Female

DRUGS (4)
  1. FASLODEX [Suspect]
     Indication: BREAST CANCER METASTATIC
     Dosage: LOADING DOSE
     Route: 030
  2. FASLODEX [Suspect]
     Dosage: 250 MG I.M. ON DAYS 15 AND 29 (LOADING DOSE)
     Route: 030
  3. FASLODEX [Suspect]
     Route: 030
  4. ARIMIDEX [Concomitant]
     Indication: BREAST CANCER METASTATIC
     Dosage: DAILY
     Route: 048

REACTIONS (1)
  - PULMONARY EMBOLISM [None]
